FAERS Safety Report 8927091 (Version 1)
Quarter: 2012Q4

REPORT INFORMATION
  Report Type: 
  Country: US (occurrence: US)
  Receive Date: 20121127
  Receipt Date: 20121127
  Transmission Date: 20130627
  Serious: Yes (Hospitalization)
  Sender: FDA-Public Use
  Company Number: US-AMGEN-USACT2002000013

PATIENT
  Age: 53 Year
  Sex: Female
  Weight: 62.9 kg

DRUGS (6)
  1. PANITUMUMAB [Suspect]
     Indication: NEOPLASM
     Dosage: 4.8 mg/kg, q2wk
     Route: 042
     Dates: start: 20080201
  2. BEVACIZUMAB [Concomitant]
     Indication: NEOPLASM
     Dosage: 651 mg, UNK
     Route: 042
     Dates: start: 20080201
  3. EVEROLIMUS [Concomitant]
     Indication: NEOPLASM
     Dosage: 5 mg, UNK
     Route: 048
     Dates: start: 20080201
  4. LISINOPRIL [Concomitant]
     Indication: PRODUCT USED FOR UNKNOWN INDICATION
     Dosage: 40 mg, UNK
  5. MAGNESIUM OXIDE [Concomitant]
     Indication: HYPOMAGNESAEMIA
  6. BENADRYL [Concomitant]
     Dates: start: 20100127

REACTIONS (3)
  - Angioedema [Not Recovered/Not Resolved]
  - Pyrexia [Unknown]
  - Hypomagnesaemia [Unknown]
